FAERS Safety Report 8319984-4 (Version None)
Quarter: 2012Q2

REPORT INFORMATION
  Report Type: 
  Country: None (occurrence: None)
  Receive Date: 20120427
  Receipt Date: 20120419
  Transmission Date: 20120825
  Serious: Yes (Hospitalization)
  Sender: FDA-Public Use
  Company Number: NL-MEDIMMUNE-MEDI-0015006

PATIENT
  Sex: Male
  Weight: 7.45 kg

DRUGS (3)
  1. ALBUTEROL [Concomitant]
  2. SYNAGIS [Suspect]
     Indication: PREMATURE BABY
     Route: 030
     Dates: start: 20111027, end: 20120119
  3. SYNAGIS [Suspect]
     Route: 030
     Dates: start: 20120216, end: 20120423

REACTIONS (6)
  - NASOPHARYNGITIS [None]
  - PYREXIA [None]
  - PRODUCTIVE COUGH [None]
  - INSOMNIA [None]
  - COUGH [None]
  - HYPOPHAGIA [None]
